FAERS Safety Report 6152269-3 (Version None)
Quarter: 2009Q2

REPORT INFORMATION
  Report Type: 
  Country: None (occurrence: None)
  Receive Date: 20090410
  Receipt Date: 20090406
  Transmission Date: 20091009
  Serious: Yes (Death)
  Sender: FDA-Public Use
  Company Number: US-ABBOTT-09P-163-0565253-00

PATIENT
  Sex: Male
  Weight: 99.88 kg

DRUGS (16)
  1. HUMIRA [Suspect]
     Indication: PSORIASIS
     Route: 058
     Dates: start: 20080901, end: 20090313
  2. HUMIRA [Suspect]
     Indication: RHEUMATOID ARTHRITIS
  3. BENADRYL [Concomitant]
     Indication: PRURITUS
     Dosage: A DAY
     Dates: end: 20090313
  4. VITAMIN D [Concomitant]
     Indication: VITAMIN SUPPLEMENTATION
     Dates: end: 20090313
  5. FUROSEMIDE [Concomitant]
     Indication: FLUID RETENTION
     Dates: end: 20090313
  6. FERROUS SULFATE TAB [Concomitant]
     Indication: ANAEMIA
     Dates: end: 20090313
  7. ASPIRIN [Concomitant]
     Indication: CORONARY ARTERIAL STENT INSERTION
     Dates: end: 20090313
  8. LEVOTHYROXINE SODIUM [Concomitant]
     Indication: WEIGHT DECREASED
     Dates: end: 20090313
  9. COREG [Concomitant]
     Indication: CARDIAC DISORDER
     Dates: end: 20090313
  10. CLONIDINE [Concomitant]
     Indication: CARDIAC DISORDER
     Dates: end: 20090313
  11. RISPERDAL [Concomitant]
     Indication: ANXIOLYTIC THERAPY
     Dates: end: 20090313
  12. CYMBALTA [Concomitant]
     Indication: DEPRESSION
     Dates: end: 20090313
  13. CYMBALTA [Concomitant]
     Indication: ANXIOLYTIC THERAPY
  14. GLIPIZIDE [Concomitant]
     Indication: DIABETES MELLITUS
     Dates: end: 20090313
  15. CYCLOSPORINE [Concomitant]
     Indication: PSORIASIS
     Dates: end: 20090201
  16. LANTUS [Concomitant]
     Indication: DIABETES MELLITUS

REACTIONS (9)
  - ARTHROPATHY [None]
  - BACK PAIN [None]
  - BLOOD GLUCOSE INCREASED [None]
  - DRUG INEFFECTIVE [None]
  - DYSSTASIA [None]
  - GAIT DISTURBANCE [None]
  - MASS [None]
  - MOBILITY DECREASED [None]
  - RESPIRATORY RATE INCREASED [None]
